FAERS Safety Report 13712308 (Version 1)
Quarter: 2017Q3

REPORT INFORMATION
  Report Type: Spontaneous
  Country: US (occurrence: US)
  Receive Date: 20170703
  Receipt Date: 20170703
  Transmission Date: 20171127
  Serious: No
  Sender: FDA-Public Use
  Company Number: US-JNJFOC-20170418087

PATIENT
  Age: 24 Year
  Sex: Female

DRUGS (3)
  1. ADVIL [Concomitant]
     Active Substance: IBUPROFEN
     Route: 065
  2. STELARA [Suspect]
     Active Substance: USTEKINUMAB
     Indication: PSORIASIS
     Route: 058
  3. IBUPROFEN. [Concomitant]
     Active Substance: IBUPROFEN
     Route: 065

REACTIONS (1)
  - Psoriasis [Unknown]
